FAERS Safety Report 21616225 (Version 1)
Quarter: 2022Q4

REPORT INFORMATION
  Report Type: Spontaneous
  Country: JP (occurrence: JP)
  Receive Date: 20221118
  Receipt Date: 20221118
  Transmission Date: 20230113
  Serious: Yes (Hospitalization)
  Sender: FDA-Public Use
  Company Number: JP-HQ SPECIALTY-JP-2022INT000191

PATIENT
  Age: 81 Year
  Sex: Female
  Weight: 43 kg

DRUGS (7)
  1. DEXMEDETOMIDINE HYDROCHLORIDE [Suspect]
     Active Substance: DEXMEDETOMIDINE HYDROCHLORIDE
     Indication: Sedative therapy
     Dosage: 0.46 MICROGRAM/KILOGRAM, 1 HR
     Route: 065
  2. REMIFENTANIL [Concomitant]
     Active Substance: REMIFENTANIL
     Indication: General anaesthesia
     Dosage: 0.3 MCG/KG/MIN AND THEN 0.1-0.2 MCG/KG/MIN. (1 MIN)
     Route: 065
  3. REMIFENTANIL [Concomitant]
     Active Substance: REMIFENTANIL
     Indication: Maintenance of anaesthesia
  4. PROPOFOL [Concomitant]
     Active Substance: PROPOFOL
     Indication: General anaesthesia
     Dosage: BOLUS (60 MG)
     Route: 065
  5. ROCURONIUM [Concomitant]
     Active Substance: ROCURONIUM BROMIDE
     Indication: General anaesthesia
     Dosage: 30 MILLIGRAM
     Route: 065
  6. SEVOFLURANE [Concomitant]
     Active Substance: SEVOFLURANE
     Indication: Maintenance of anaesthesia
     Dosage: 1 PERCENT TO 2 PERCENT
     Route: 065
  7. FENTANYL [Concomitant]
     Active Substance: FENTANYL
     Indication: Postoperative analgesia
     Dosage: 100 MICROGRAM/H (100 MCG, 1 HR)
     Route: 065

REACTIONS (1)
  - Arteriospasm coronary [Recovered/Resolved]
